FAERS Safety Report 7608661-0 (Version None)
Quarter: 2011Q3

REPORT INFORMATION
  Report Type: 
  Country: None (occurrence: None)
  Receive Date: 20110714
  Receipt Date: 20110713
  Transmission Date: 20111222
  Serious: Yes (Hospitalization)
  Sender: FDA-Public Use
  Company Number: US-ROXANE LABORATORIES, INC.-2011-RO-00984RO

PATIENT
  Sex: Female

DRUGS (2)
  1. MORPHINE [Suspect]
     Dates: start: 20110709, end: 20110709
  2. CLONOPIN [Concomitant]
     Indication: DEPRESSION

REACTIONS (1)
  - OVERDOSE [None]
